FAERS Safety Report 20609515 (Version 1)
Quarter: 2022Q1

REPORT INFORMATION
  Report Type: Spontaneous
  Country: FR (occurrence: FR)
  Receive Date: 20220318
  Receipt Date: 20220318
  Transmission Date: 20220423
  Serious: Yes (Hospitalization, Other)
  Sender: FDA-Public Use
  Company Number: FR-AFSSAPS-MP20221218

PATIENT
  Age: 89 Year
  Sex: Male

DRUGS (10)
  1. AMOXICILLIN [Suspect]
     Active Substance: AMOXICILLIN
     Indication: Endocarditis enterococcal
     Dosage: 1 GRAM, 3 TIMES A DAY (IN COMBINATION WITH CLAVULANIC ACID)
     Route: 042
     Dates: start: 20220202, end: 20220203
  2. AMOXICILLIN [Suspect]
     Active Substance: AMOXICILLIN
     Dosage: 500 MILLIGRAM, 3 TIMES A DAY (IN COMBINATION WITH CLAVULANIC ACID)
     Route: 042
     Dates: start: 20220204, end: 20220204
  3. AMOXICILLIN [Suspect]
     Active Substance: AMOXICILLIN
     Dosage: 2 GRAM, EVERY FOUR HOUR
     Route: 041
     Dates: start: 20220205, end: 20220225
  4. CEFTRIAXONE [Suspect]
     Active Substance: CEFTRIAXONE
     Indication: Endocarditis enterococcal
     Dosage: 2 GRAM, TWO TIMES A DAY
     Route: 042
     Dates: start: 20220205, end: 20220225
  5. LOVENOX [Concomitant]
     Active Substance: ENOXAPARIN SODIUM
     Indication: Product used for unknown indication
     Dosage: 1 DOSAGE FORM, ONCE A DAY
     Route: 058
     Dates: start: 20220209
  6. ACETAMINOPHEN [Concomitant]
     Active Substance: ACETAMINOPHEN
     Indication: Product used for unknown indication
     Dosage: 3 GRAM, ONCE A DAY
     Route: 048
     Dates: start: 20220202
  7. FUROSEMIDE [Concomitant]
     Active Substance: FUROSEMIDE
     Indication: Product used for unknown indication
     Dosage: UNK
     Route: 048
     Dates: start: 20220214
  8. CLAVULANIC ACID [Concomitant]
     Active Substance: CLAVULANIC ACID
     Indication: Endocarditis enterococcal
     Dosage: 200 MILLIGRAM, 3 TIMES A DAY (IN COMBINATION WITH AMOXICILLIN)
     Route: 042
     Dates: start: 20220202, end: 20220203
  9. CLAVULANIC ACID [Concomitant]
     Active Substance: CLAVULANIC ACID
     Dosage: 50 MILLIGRAM, 3 TIMES A DAY (IN COMBINATION WITH AMOXICILLIN)
     Route: 042
     Dates: start: 20220204, end: 20220204
  10. ESCITALOPRAM [Concomitant]
     Active Substance: ESCITALOPRAM OXALATE
     Indication: Product used for unknown indication
     Dosage: 10 MILLIGRAM, ONCE A DAY
     Route: 048
     Dates: start: 20220202

REACTIONS (1)
  - Pancytopenia [Recovering/Resolving]

NARRATIVE: CASE EVENT DATE: 20220224
